FAERS Safety Report 17313232 (Version 1)
Quarter: 2020Q1

REPORT INFORMATION
  Report Type: Spontaneous
  Country: US (occurrence: US)
  Receive Date: 20200124
  Receipt Date: 20200124
  Transmission Date: 20200409
  Serious: Yes (Hospitalization)
  Sender: FDA-Public Use
  Company Number: US-ROCHE-2529784

PATIENT
  Age: 72 Year
  Sex: Male

DRUGS (14)
  1. CHOLESTYRAMINE. [Concomitant]
     Active Substance: CHOLESTYRAMINE
  2. GLUCOSAMINE [Concomitant]
     Active Substance: GLUCOSAMINE
  3. LANSOPRAZOLE. [Concomitant]
     Active Substance: LANSOPRAZOLE
  4. LORATADINE. [Concomitant]
     Active Substance: LORATADINE
  5. ESBRIET [Suspect]
     Active Substance: PIRFENIDONE
     Indication: PULMONARY FIBROSIS
     Dosage: ONGOING:YES
     Route: 048
     Dates: start: 20160708
  6. SAW PALMETTO [SERENOA REPENS] [Concomitant]
  7. VIT D [Concomitant]
     Active Substance: VITAMIN D NOS
  8. METOPROLOL. [Concomitant]
     Active Substance: METOPROLOL
  9. ASPIRIN [ACETYLSALICYLIC ACID] [Concomitant]
     Active Substance: ASPIRIN
  10. NIACIN. [Concomitant]
     Active Substance: NIACIN
  11. VITAMIN C [Concomitant]
     Active Substance: ASCORBIC ACID
  12. FENOFIBRATE. [Concomitant]
     Active Substance: FENOFIBRATE
  13. FLAXSEED OIL [LINUM USITATISSIMUM SEED OIL] [Concomitant]
     Active Substance: HERBALS\LINSEED OIL
  14. IMODIUM A-D [Concomitant]
     Active Substance: LOPERAMIDE HYDROCHLORIDE

REACTIONS (1)
  - Pneumonia [Unknown]

NARRATIVE: CASE EVENT DATE: 20191230
